FAERS Safety Report 10285290 (Version 1)
Quarter: 2014Q3

REPORT INFORMATION
  Report Type: Spontaneous
  Country: KR (occurrence: KR)
  Receive Date: 20140708
  Receipt Date: 20140708
  Transmission Date: 20150326
  Serious: Yes (Other)
  Sender: FDA-Public Use
  Company Number: KR-ACTAVIS-2014-14574

PATIENT
  Age: 77 Year
  Sex: Female

DRUGS (3)
  1. DONEPEZIL (UNKNOWN) [Suspect]
     Active Substance: DONEPEZIL
     Indication: DEMENTIA
     Dosage: 10 MG, UNKNOWN
  2. DONEPEZIL (UNKNOWN) [Suspect]
     Active Substance: DONEPEZIL
     Dosage: 5 MG, UNKNOWN
     Route: 065
  3. LEVODOPA [Concomitant]
     Active Substance: LEVODOPA
     Indication: DEMENTIA
     Dosage: 250 MG, BID
     Route: 065

REACTIONS (1)
  - Torticollis [Recovered/Resolved]
